FAERS Safety Report 5970477-9 (Version None)
Quarter: 2008Q4

REPORT INFORMATION
  Report Type: 
  Country: None (occurrence: None)
  Receive Date: 20081126
  Receipt Date: 20081024
  Transmission Date: 20090506
  Serious: No
  Sender: FDA-Public Use
  Company Number: US-ABBOTT-08P-163-0483925-00

PATIENT
  Sex: Female
  Weight: 59.02 kg

DRUGS (4)
  1. SIMCOR [Suspect]
     Indication: BLOOD CHOLESTEROL INCREASED
     Dosage: 1000/20 MG
     Route: 048
     Dates: start: 20081021, end: 20081023
  2. SIMCOR [Suspect]
     Dosage: 500/20 MG
     Route: 048
     Dates: start: 20081028
  3. SIMCOR [Suspect]
     Dosage: 500/20 MG
     Dates: start: 20081007, end: 20081020
  4. CELECOXIB [Concomitant]
     Indication: DRUG USE FOR UNKNOWN INDICATION

REACTIONS (1)
  - URTICARIA [None]
